FAERS Safety Report 14544394 (Version 1)
Quarter: 2018Q1

REPORT INFORMATION
  Report Type: Spontaneous
  Country: US (occurrence: US)
  Receive Date: 20180216
  Receipt Date: 20180216
  Transmission Date: 20180509
  Serious: Yes (Death)
  Sender: FDA-Public Use
  Company Number: US-ROCHE-2070288

PATIENT
  Age: 83 Year
  Sex: Male

DRUGS (1)
  1. VEMURAFENIB. [Suspect]
     Active Substance: VEMURAFENIB
     Indication: MALIGNANT MELANOMA
     Dosage: ONGOING: UNKNOWN
     Route: 048
     Dates: start: 20161028

REACTIONS (1)
  - Death [Fatal]

NARRATIVE: CASE EVENT DATE: 20180131
